FAERS Safety Report 14931796 (Version 1)
Quarter: 2018Q2

REPORT INFORMATION
  Report Type: Report from Study
  Country: US (occurrence: US)
  Receive Date: 20180524
  Receipt Date: 20180524
  Transmission Date: 20180711
  Serious: No
  Sender: FDA-Public Use
  Company Number: US-ACADIA PHARMACEUTICALS INC.-ACA-2018-007349

PATIENT
  Sex: Female
  Weight: 63.39 kg

DRUGS (1)
  1. NUPLAZID [Suspect]
     Active Substance: PIMAVANSERIN TARTRATE
     Indication: HALLUCINATION
     Dosage: 34 MG, QD
     Route: 048
     Dates: start: 20171115, end: 20180103

REACTIONS (7)
  - Tremor [Recovering/Resolving]
  - General physical health deterioration [Unknown]
  - Delusion [Recovering/Resolving]
  - Off label use [Unknown]
  - Depression [Recovering/Resolving]
  - Crying [Recovering/Resolving]
  - Asthenia [Unknown]
